FAERS Safety Report 7014639 (Version 1)
Quarter: 2020Q3

REPORT INFORMATION
  Report Type: Report from Study
  Country: US (occurrence: US)
  Receive Date: 20090609
  Receipt Date: 20090609
  Transmission Date: 20201105
  Serious: Yes (Other)
  Sender: FDA-Public Use
  Company Number: US-ROCHE-636267

PATIENT
  Age: 56 Year
  Sex: Female

DRUGS (1)
  1. IBANDRONIC ACID. [Suspect]
     Active Substance: IBANDRONIC ACID
     Indication: OSTEOPOROSIS
     Route: 048
     Dates: start: 2005

REACTIONS (5)
  - Hepatic enzyme increased [Unknown]
  - Diabetes mellitus [Unknown]
  - Oropharyngeal pain [Unknown]
  - Pain [Unknown]
  - Eye inflammation [Unknown]

NARRATIVE: CASE EVENT DATE: 20080601
